FAERS Safety Report 16527453 (Version 2)
Quarter: 2019Q3

REPORT INFORMATION
  Report Type: Spontaneous
  Country: IT (occurrence: IT)
  Receive Date: 20190703
  Receipt Date: 20190711
  Transmission Date: 20191004
  Serious: Yes (Hospitalization)
  Sender: FDA-Public Use
  Company Number: IT-CELGENEUS-ITA-20190611285

PATIENT
  Age: 78 Year
  Sex: Female
  Weight: 49 kg

DRUGS (7)
  1. LEVETIRACETAM. [Concomitant]
     Active Substance: LEVETIRACETAM
     Indication: PROPHYLAXIS
     Route: 065
     Dates: start: 20190621
  2. PRACINOSTAT [Concomitant]
     Active Substance: PRACINOSTAT
     Indication: ACUTE MYELOID LEUKAEMIA
     Route: 048
     Dates: start: 20190313, end: 20190615
  3. PANTOPRAZOLE [Concomitant]
     Active Substance: PANTOPRAZOLE
     Indication: HIATUS HERNIA
     Dosage: 20 MILLIGRAM
     Route: 048
  4. AZACITIDINE. [Suspect]
     Active Substance: AZACITIDINE
     Indication: ACUTE MYELOID LEUKAEMIA
     Route: 058
     Dates: start: 20190313, end: 20190603
  5. CHOLECALCIFEROL [Concomitant]
     Active Substance: CHOLECALCIFEROL
     Indication: OSTEOPOROSIS
     Route: 048
  6. TRAMADOL. [Concomitant]
     Active Substance: TRAMADOL
     Indication: SPINAL COMPRESSION FRACTURE
     Dosage: 37.5 MILLIGRAM
     Route: 048
  7. BARNIDIPINE [Concomitant]
     Active Substance: BARNIDIPINE
     Indication: HYPERTENSION
     Dosage: 10 MILLIGRAM
     Route: 048
     Dates: start: 1999

REACTIONS (1)
  - Thrombocytopenia [Recovered/Resolved]

NARRATIVE: CASE EVENT DATE: 20190616
